FAERS Safety Report 8270783 (Version 4)
Quarter: 2013Q2

REPORT INFORMATION
  Report Type: Spontaneous
  Country: US (occurrence: None)
  Receive Date: 20111122
  Receipt Date: 20121031
  Transmission Date: 20140414
  Serious: No
  Sender: FDA-Public Use
  Company Number: PHHY2011US59633

PATIENT
  Age: 62 Year
  Sex: Female
  Weight: 78.9 kg

DRUGS (6)
  1. GILENYA [Suspect]
     Indication: MULTIPLE SCLEROSIS
     Route: 048
     Dates: start: 20110623
  2. PRILOSEC (OMEPRAZOLE) CAPSULE [Concomitant]
  3. COQ10 (UBIDECARENONE) CAPSULE [Concomitant]
  4. VITAMIN D (ERGOCALCIFEROL) [Concomitant]
  5. ALEVE (NAPROXEN SODIUM) TABLET [Concomitant]
  6. CALCIUM CARBONATE [Concomitant]

REACTIONS (7)
  - Sensation of heaviness [None]
  - Fatigue [None]
  - Musculoskeletal stiffness [None]
  - Visual impairment [None]
  - Hypertension [None]
  - Hypersensitivity [None]
  - Speech disorder [None]
